APPROVED DRUG PRODUCT: ORPHENADRINE CITRATE
Active Ingredient: ORPHENADRINE CITRATE
Strength: 30MG/ML
Dosage Form/Route: INJECTABLE;INJECTION
Application: A040484 | Product #001 | TE Code: AP
Applicant: RISING PHARMA HOLDINGS INC
Approved: May 24, 2006 | RLD: No | RS: Yes | Type: RX